FAERS Safety Report 14425890 (Version 1)
Quarter: 2018Q1

REPORT INFORMATION
  Report Type: Report from Study
  Country: MY (occurrence: MY)
  Receive Date: 20180123
  Receipt Date: 20180123
  Transmission Date: 20180509
  Serious: Yes (Death, Hospitalization, Other)
  Sender: FDA-Public Use
  Company Number: PHHY2017MY195956

PATIENT
  Age: 13 Year
  Sex: Female

DRUGS (12)
  1. TAZOCIN [Concomitant]
     Active Substance: PIPERACILLIN SODIUM\TAZOBACTAM SODIUM
     Indication: PRODUCT USED FOR UNKNOWN INDICATION
     Dosage: 90 MG/KG, TID
     Route: 042
     Dates: start: 20170907, end: 20170911
  2. TAZOCIN [Concomitant]
     Active Substance: PIPERACILLIN SODIUM\TAZOBACTAM SODIUM
     Dosage: 90 MG/KG, TID
     Route: 042
     Dates: start: 20170924, end: 20170926
  3. AMIKACIN [Concomitant]
     Active Substance: AMIKACIN
     Indication: PRODUCT USED FOR UNKNOWN INDICATION
     Dosage: 15 MG/KG, QD
     Route: 042
     Dates: start: 20170907, end: 20170911
  4. MEROPENEM. [Concomitant]
     Active Substance: MEROPENEM
     Dosage: 20 MG/KG, TID
     Route: 042
     Dates: start: 20170926
  5. GLIVEC [Suspect]
     Active Substance: IMATINIB MESYLATE
     Indication: CHRONIC MYELOID LEUKAEMIA
     Dosage: 400 MG, UNK
     Route: 065
     Dates: start: 20170608, end: 20170924
  6. DEXAMETHASONE. [Concomitant]
     Active Substance: DEXAMETHASONE
     Indication: PRODUCT USED FOR UNKNOWN INDICATION
     Dosage: 6 MG/M2, QD
     Route: 048
     Dates: start: 20170915, end: 20170924
  7. ASPARAGINASE [Concomitant]
     Active Substance: ASPARAGINASE
     Indication: PRODUCT USED FOR UNKNOWN INDICATION
     Dosage: 6000 UG/M2, UNK
     Route: 030
     Dates: start: 20170921, end: 20170923
  8. AMIKACIN [Concomitant]
     Active Substance: AMIKACIN
     Dosage: 15 MG/KG, QD
     Route: 042
     Dates: start: 20170924, end: 20170926
  9. VINCRISTINE [Concomitant]
     Active Substance: VINCRISTINE
     Indication: PRODUCT USED FOR UNKNOWN INDICATION
     Dosage: 1.5 MG/M2, QD
     Route: 042
     Dates: start: 20170919
  10. MEROPENEM. [Concomitant]
     Active Substance: MEROPENEM
     Indication: PRODUCT USED FOR UNKNOWN INDICATION
     Dosage: 20 MG/KG, TID
     Route: 042
     Dates: start: 20170911, end: 20170914
  11. METHOTREXATE. [Concomitant]
     Active Substance: METHOTREXATE
     Indication: PRODUCT USED FOR UNKNOWN INDICATION
     Dosage: 12 MG, UNK
     Route: 037
     Dates: start: 20170918
  12. DAUNORUBICIN [Concomitant]
     Active Substance: DAUNORUBICIN
     Indication: PRODUCT USED FOR UNKNOWN INDICATION
     Dosage: 25 MG/M2, QD
     Route: 042
     Dates: start: 20170919

REACTIONS (5)
  - Septic shock [Unknown]
  - Morganella infection [Fatal]
  - Blast crisis in myelogenous leukaemia [Unknown]
  - Multiple organ dysfunction syndrome [Unknown]
  - Febrile neutropenia [Unknown]

NARRATIVE: CASE EVENT DATE: 20170924
